FAERS Safety Report 4543198-7 (Version None)
Quarter: 2004Q4

REPORT INFORMATION
  Report Type: 
  Country: None (occurrence: None)
  Receive Date: 20041230
  Receipt Date: 20041230
  Transmission Date: 20050328
  Serious: No
  Sender: FDA-Public Use
  Company Number: None

PATIENT
  Age: 63 Year
  Sex: Female
  Weight: 81 kg

DRUGS (1)
  1. ROSUVASTATIN   5MG  ASTRAZENECA [Suspect]
     Indication: HYPERLIPIDAEMIA
     Dosage: 5MG  EVERY OTHER DAY ORAL
     Route: 048
     Dates: start: 20030710, end: 20041229

REACTIONS (4)
  - BLOOD CREATINE PHOSPHOKINASE INCREASED [None]
  - FATIGUE [None]
  - MYOPATHY [None]
  - NERVE ROOT COMPRESSION [None]
